FAERS Safety Report 13577753 (Version 2)
Quarter: 2017Q2

REPORT INFORMATION
  Report Type: Spontaneous
  Country: US (occurrence: US)
  Receive Date: 20170524
  Receipt Date: 20170628
  Transmission Date: 20170830
  Serious: Yes (Other)
  Sender: FDA-Public Use
  Company Number: US-TEVA-770552ACC

PATIENT
  Age: 20 Year
  Sex: Female
  Weight: 98.06 kg

DRUGS (1)
  1. PARAGARD T 380A [Suspect]
     Active Substance: COPPER
     Indication: CONTRACEPTION
     Dates: start: 20170508, end: 20170512

REACTIONS (4)
  - Device expulsion [Recovered/Resolved]
  - Muscle spasms [Unknown]
  - Vaginal haemorrhage [Unknown]
  - Device dislocation [Recovered/Resolved]

NARRATIVE: CASE EVENT DATE: 20170511
